FAERS Safety Report 7681476-3 (Version None)
Quarter: 2011Q3

REPORT INFORMATION
  Report Type: 
  Country: None (occurrence: None)
  Receive Date: 20110812
  Receipt Date: 20110801
  Transmission Date: 20111222
  Serious: Yes (Hospitalization)
  Sender: FDA-Public Use
  Company Number: PHHY2011US71018

PATIENT
  Age: 88 Year
  Sex: Female

DRUGS (6)
  1. CHLORTHALIDONE [Concomitant]
     Dosage: 25 MG, UNK
  2. CLONIDINE [Concomitant]
     Dosage: 0.3 MG, WEEKLY PATCH
     Route: 062
  3. DILTIAZEM [Concomitant]
     Dosage: 180 MG, UNK
  4. HYDRALAZINE HCL [Suspect]
     Dosage: 50 MG, BID
  5. LISINOPRIL [Concomitant]
     Dosage: 40 MG, UNK
  6. METOPROLOL TARTRATE [Suspect]
     Dosage: 50 MG, BID

REACTIONS (6)
  - BLOOD CREATININE INCREASED [None]
  - NODAL RHYTHM [None]
  - BRADYCARDIA [None]
  - PRESYNCOPE [None]
  - BLOOD PRESSURE INCREASED [None]
  - BLOOD POTASSIUM INCREASED [None]
